FAERS Safety Report 6823040-1 (Version None)
Quarter: 2010Q3

REPORT INFORMATION
  Report Type: 
  Country: None (occurrence: None)
  Receive Date: 20100708
  Receipt Date: 20100629
  Transmission Date: 20110219
  Serious: Yes (Other)
  Sender: FDA-Public Use
  Company Number: B0660591A

PATIENT
  Age: 52 Year
  Sex: Male

DRUGS (4)
  1. PAXIL [Suspect]
     Indication: DEPRESSION
     Dosage: 10MG PER DAY
     Route: 048
     Dates: start: 20090201
  2. SELBEX [Concomitant]
     Dosage: 50MG PER DAY
     Route: 048
  3. MAGLAX [Concomitant]
     Dosage: 330MG PER DAY
     Route: 048
  4. DEPAS [Concomitant]
     Route: 048

REACTIONS (2)
  - ANAEMIA [None]
  - THERAPEUTIC RESPONSE UNEXPECTED [None]
